FAERS Safety Report 16855460 (Version 1)
Quarter: 2019Q3

REPORT INFORMATION
  Report Type: Spontaneous
  Country: US (occurrence: US)
  Receive Date: 20190805
  Receipt Date: 20190805
  Transmission Date: 20191005
  Serious: No
  Sender: FDA-Public Use
  Company Number: None

PATIENT
  Age: 82 Year
  Sex: Male

DRUGS (2)
  1. VYNDAQEL [Suspect]
     Active Substance: TAFAMIDIS MEGLUMINE
     Indication: ATRIAL FIBRILLATION
     Dosage: ?          OTHER FREQUENCY:4 DAILY;?
     Route: 048
     Dates: start: 20190720
  2. VYNDAQEL [Suspect]
     Active Substance: TAFAMIDIS MEGLUMINE
     Indication: AMYLOIDOSIS
     Dosage: ?          OTHER FREQUENCY:4 DAILY;?
     Route: 048
     Dates: start: 20190720

REACTIONS (1)
  - Gout [None]

NARRATIVE: CASE EVENT DATE: 20190729
